FAERS Safety Report 6189881-1 (Version None)
Quarter: 2009Q2

REPORT INFORMATION
  Report Type: 
  Country: None (occurrence: None)
  Receive Date: 20090514
  Receipt Date: 20070605
  Transmission Date: 20091009
  Serious: Yes (Other)
  Sender: FDA-Public Use
  Company Number: US-ASTRAZENECA-2006UW10992

PATIENT
  Age: 16033 Day
  Sex: Female
  Weight: 128.4 kg

DRUGS (22)
  1. SEROQUEL [Suspect]
     Indication: BIPOLAR DISORDER
     Dosage: 50 MG  -  200 MG
     Route: 048
     Dates: start: 20050512
  2. SEROQUEL [Suspect]
     Indication: ARTHRITIS
     Dosage: 50 MG  -  200 MG
     Route: 048
     Dates: start: 20050512
  3. SEROQUEL [Suspect]
     Indication: SLEEP DISORDER
     Dosage: 50 MG  -  200 MG
     Route: 048
     Dates: start: 20050512
  4. SEROQUEL [Suspect]
     Indication: ANXIETY
     Dosage: 50 MG  -  200 MG
     Route: 048
     Dates: start: 20050512
  5. ZYPREXA [Suspect]
     Route: 065
     Dates: start: 20021001, end: 20050101
  6. EFFEXOR [Concomitant]
     Dosage: 225MG - 300 MG
     Route: 065
  7. DEPAKOTE [Concomitant]
     Route: 065
  8. CONCERTA [Concomitant]
     Route: 065
  9. LUNESTA [Concomitant]
     Route: 065
  10. DETROL [Concomitant]
     Route: 065
  11. MAXZIDE [Concomitant]
     Route: 065
  12. VICODIN [Concomitant]
     Route: 065
  13. LIPITOR [Concomitant]
     Route: 065
  14. AMBIEN [Concomitant]
     Dosage: 10 MG, 12.5 MG
     Route: 065
  15. GLUCOTROL [Concomitant]
     Dosage: 10 MG, 15 MG
     Route: 065
  16. LODINE [Concomitant]
     Route: 065
  17. PREVACID [Concomitant]
     Route: 065
  18. GLUCOPHAGE [Concomitant]
     Route: 065
  19. MEVACOR [Concomitant]
     Route: 065
  20. ZESTRIL [Concomitant]
     Route: 065
  21. METHYLPREDNISOLONE ACETATE [Concomitant]
     Route: 065
  22. VYTORIN [Concomitant]
     Route: 065

REACTIONS (7)
  - CELLULITIS [None]
  - COUGH [None]
  - DEAFNESS [None]
  - DIABETES MELLITUS [None]
  - DIABETIC NEUROPATHY [None]
  - GOUTY ARTHRITIS [None]
  - PAIN IN EXTREMITY [None]
